FAERS Safety Report 20879563 (Version 2)
Quarter: 2022Q2

REPORT INFORMATION
  Report Type: Spontaneous
  Country: SA (occurrence: SA)
  Receive Date: 20220526
  Receipt Date: 20220602
  Transmission Date: 20220721
  Serious: Yes (Other)
  Sender: FDA-Public Use
  Company Number: SA-PFIZER INC-202200741965

PATIENT
  Age: 24 Year
  Sex: Male

DRUGS (12)
  1. ANIDULAFUNGIN [Suspect]
     Active Substance: ANIDULAFUNGIN
     Indication: Acute lymphocytic leukaemia
     Dosage: 200 MG (1 DOSE)
     Route: 042
  2. ANIDULAFUNGIN [Suspect]
     Active Substance: ANIDULAFUNGIN
     Dosage: 100 MG, DAILY
     Route: 042
  3. FILGRASTIM [Concomitant]
     Active Substance: FILGRASTIM
     Dosage: 0.3 MG, 4X/DAY (300 MCG S.C Q.D DAY 23-29)
     Route: 058
  4. SEPTRA [Concomitant]
     Active Substance: SULFAMETHOXAZOLE\TRIMETHOPRIM
     Dosage: UNK (TH, FR)
  5. ACYCLOVIR [Concomitant]
     Active Substance: ACYCLOVIR
     Dosage: 400 MG, 2X/DAY
     Route: 048
  6. METHOTREXATE SODIUM [Concomitant]
     Active Substance: METHOTREXATE SODIUM
     Dosage: UNK (IF CNS 2-3, ADD D*,22 AND SEE PROTOCOL)
  7. RITUXIMAB [Concomitant]
     Active Substance: RITUXIMAB
     Dosage: 375 MG, 4X/DAY (375 MG/M2 INJECTION INTRAVENOUS Q.D. (DAY 0 AND DAY22))
     Route: 042
  8. CYTARABINE [Concomitant]
     Active Substance: CYTARABINE
  9. CYCLOPHOSPHAMIDE [Concomitant]
     Active Substance: CYCLOPHOSPHAMIDE
     Dosage: 1000 MG (1000MG/M2 IV OVER 60 MINTS)
     Route: 042
  10. FLUCONAZOLE [Concomitant]
     Active Substance: FLUCONAZOLE
     Dosage: 400 MG, 2X/DAY (400MG PO BID DAYS 22-29 C1 AND C2)
     Route: 048
  11. ASPARAGINASE ERWINIA CHRYSANTHEMI [Concomitant]
     Active Substance: ASPARAGINASE ERWINIA CHRYSANTHEMI
     Dosage: 25000IU/M2
     Route: 030
  12. DAUNORUBICIN [Concomitant]
     Active Substance: DAUNORUBICIN
     Dosage: 25 MG/M2 OVER 1 HR
     Route: 042

REACTIONS (8)
  - Febrile neutropenia [Unknown]
  - Coagulopathy [Unknown]
  - Anaphylactic reaction [Unknown]
  - Cavernous sinus syndrome [Unknown]
  - Sigmoid sinus thrombosis [Unknown]
  - Haemorrhagic infarction [Unknown]
  - Seizure [Unknown]
  - Disease recurrence [Unknown]
